FAERS Safety Report 9514260 (Version 1)
Quarter: 2013Q3

REPORT INFORMATION
  Report Type: Spontaneous
  Country: US (occurrence: US)
  Receive Date: 20130910
  Receipt Date: 20130910
  Transmission Date: 20140515
  Serious: No
  Sender: FDA-Public Use
  Company Number: US-009507513-1309USA003977

PATIENT
  Sex: Female

DRUGS (1)
  1. ELAVIL (MADE BY MERCK, MARKETED BY ZENECA) [Suspect]
     Indication: DEPRESSION
     Route: 048

REACTIONS (1)
  - Drug ineffective [Unknown]
